FAERS Safety Report 11137197 (Version 4)
Quarter: 2016Q1

REPORT INFORMATION
  Report Type: Spontaneous
  Country: JP (occurrence: JP)
  Receive Date: 20150526
  Receipt Date: 20160225
  Transmission Date: 20160525
  Serious: Yes (Other)
  Sender: FDA-Public Use
  Company Number: JP-GLAXOSMITHKLINE-JP2015JPN067730

PATIENT
  Age: 61 Year
  Sex: Male

DRUGS (1)
  1. ALLERMIST [Suspect]
     Active Substance: FLUTICASONE FUROATE
     Indication: RHINITIS ALLERGIC
     Dosage: 27.5 ?G, QD
     Route: 045
     Dates: start: 20150420, end: 20150513

REACTIONS (4)
  - Oral candidiasis [Recovered/Resolved with Sequelae]
  - Candida infection [Recovered/Resolved with Sequelae]
  - Oesophageal candidiasis [Recovered/Resolved]
  - Oral mucosal erythema [Unknown]

NARRATIVE: CASE EVENT DATE: 20150513
